FAERS Safety Report 6105937-3 (Version None)
Quarter: 2009Q1

REPORT INFORMATION
  Report Type: 
  Country: None (occurrence: None)
  Receive Date: 20090306
  Receipt Date: 20080304
  Transmission Date: 20090719
  Serious: No
  Sender: FDA-Public Use
  Company Number: US-BRISTOL-MYERS SQUIBB COMPANY-14101836

PATIENT
  Sex: Female

DRUGS (1)
  1. TAXOL [Suspect]
     Dates: end: 20080101

REACTIONS (3)
  - CONSTIPATION [None]
  - NAUSEA [None]
  - PARAESTHESIA [None]
